FAERS Safety Report 4622716-4 (Version None)
Quarter: 2005Q1

REPORT INFORMATION
  Report Type: 
  Country: None (occurrence: None)
  Receive Date: 20050329
  Receipt Date: 20050329
  Transmission Date: 20050727
  Serious: Yes (Life-Threatening, Disabling)
  Sender: FDA-Public Use
  Company Number: None

PATIENT
  Age: 61 Year
  Sex: Female
  Weight: 83.9154 kg

DRUGS (2)
  1. ELIDEL [Suspect]
     Indication: DERMATITIS
     Dosage: MOD.AM^T  2-3X/DAY TOPICAL
     Route: 061
     Dates: start: 20010101, end: 20011231
  2. PROTOPIC [Suspect]
     Dosage: MOD.AM^T   2-3X/DAY TOPICAL
     Route: 061
     Dates: start: 20010101, end: 20011231

REACTIONS (1)
  - NON-HODGKIN'S LYMPHOMA [None]
